FAERS Safety Report 25357380 (Version 2)
Quarter: 2025Q3

REPORT INFORMATION
  Report Type: Spontaneous
  Country: US (occurrence: US)
  Receive Date: 20250526
  Receipt Date: 20250703
  Transmission Date: 20251020
  Serious: No
  Sender: BRISTOL-MYERS SQUIBB COMPANY
  Company Number: US-BRISTOL-MYERS SQUIBB COMPANY-2025-074465

PATIENT
  Age: 71 Year
  Sex: Female

DRUGS (2)
  1. ORENCIA [Suspect]
     Active Substance: ABATACEPT
     Indication: Rheumatoid arthritis
     Dosage: STRENGTH: 250 MG/VIAL?FREQUENCY: INFUSE 750 MG INTRAVENOUSLY AT WEEK 0,2 ,4, THEN EVERY 4 WEEKS THER
     Route: 042
     Dates: start: 202504
  2. ORENCIA [Suspect]
     Active Substance: ABATACEPT
     Route: 042
     Dates: start: 202504

REACTIONS (6)
  - Pain [Unknown]
  - General physical health deterioration [Unknown]
  - Therapy non-responder [Unknown]
  - Insomnia [Unknown]
  - Spinal pain [Unknown]
  - Neck pain [Unknown]
